FAERS Safety Report 12239189 (Version 1)
Quarter: 2016Q2

REPORT INFORMATION
  Report Type: Spontaneous
  Country: CN (occurrence: CN)
  Receive Date: 20160405
  Receipt Date: 20160405
  Transmission Date: 20160815
  Serious: Yes (Other)
  Sender: FDA-Public Use
  Company Number: CN-BAXTER-2016BAX016790

PATIENT
  Age: 3 Year
  Sex: Male
  Weight: 15.5 kg

DRUGS (2)
  1. BILISHU [Suspect]
     Active Substance: CEFMETAZOLE SODIUM
     Indication: NEPHROTIC SYNDROME
     Route: 041
     Dates: start: 20150812, end: 20150813
  2. 20% MANNITOL INJECTION [Suspect]
     Active Substance: MANNITOL
     Indication: DEHYDRATION
     Route: 041
     Dates: start: 20150813, end: 20150813

REACTIONS (1)
  - Rash erythematous [Recovered/Resolved]

NARRATIVE: CASE EVENT DATE: 20150813
